FAERS Safety Report 17030961 (Version 1)
Quarter: 2019Q4

REPORT INFORMATION
  Report Type: Spontaneous
  Country: NL (occurrence: NL)
  Receive Date: 20191114
  Receipt Date: 20191114
  Transmission Date: 20200122
  Serious: Yes (Other)
  Sender: FDA-Public Use
  Company Number: NL-MYLANLABS-2019M1109857

PATIENT
  Age: 36 Year
  Sex: Male
  Weight: 85 kg

DRUGS (1)
  1. NORTRIPTYLINE [Suspect]
     Active Substance: NORTRIPTYLINE
     Indication: ATTENTION DEFICIT/HYPERACTIVITY DISORDER
     Dosage: 1 X PER DAG 3 STUKS
     Route: 048
     Dates: start: 2013

REACTIONS (6)
  - Depressed mood [Recovered/Resolved]
  - Product taste abnormal [Unknown]
  - Off label use [Unknown]
  - Suicidal ideation [Recovered/Resolved]
  - Therapeutic response unexpected [Unknown]
  - Listless [Recovered/Resolved]

NARRATIVE: CASE EVENT DATE: 20190801
